FAERS Safety Report 10458646 (Version 2)
Quarter: 2014Q4

REPORT INFORMATION
  Report Type: Spontaneous
  Country: US (occurrence: US)
  Receive Date: 20140917
  Receipt Date: 20141009
  Transmission Date: 20150528
  Serious: Yes (Death, Hospitalization)
  Sender: FDA-Public Use
  Company Number: US-ELI_LILLY_AND_COMPANY-US201409004997

PATIENT
  Age: 68 Year
  Sex: Male
  Weight: 88.35 kg

DRUGS (2)
  1. CYRAMZA [Suspect]
     Active Substance: RAMUCIRUMAB
     Indication: OESOPHAGEAL ADENOCARCINOMA
     Dosage: 716 MG, 2/M
     Route: 042
     Dates: start: 20140730, end: 20140827
  2. NEXIUM [Concomitant]
     Active Substance: ESOMEPRAZOLE MAGNESIUM
     Indication: PRODUCT USED FOR UNKNOWN INDICATION
     Dosage: 20 MG, QD
     Route: 065

REACTIONS (2)
  - Gastrointestinal haemorrhage [Fatal]
  - Shock haemorrhagic [Unknown]

NARRATIVE: CASE EVENT DATE: 20140903
